FAERS Safety Report 9492323 (Version 1)
Quarter: 2013Q3

REPORT INFORMATION
  Report Type: Spontaneous
  Country: GB (occurrence: GB)
  Receive Date: 20130830
  Receipt Date: 20130830
  Transmission Date: 20140515
  Serious: Yes (Other)
  Sender: FDA-Public Use
  Company Number: PHHY2013GB092753

PATIENT
  Age: 50 Year
  Sex: Male
  Weight: 66.22 kg

DRUGS (1)
  1. TRAMADOL HYDROCHLORIDE [Suspect]
     Indication: PAIN
     Dosage: 100 MG, QID
     Route: 048
     Dates: start: 20050401

REACTIONS (5)
  - Depressed mood [Unknown]
  - Anxiety [Not Recovered/Not Resolved]
  - Panic reaction [Unknown]
  - Dependence [Not Recovered/Not Resolved]
  - Drug withdrawal syndrome [Unknown]
